FAERS Safety Report 6845286-9 (Version None)
Quarter: 2010Q3

REPORT INFORMATION
  Report Type: 
  Country: None (occurrence: None)
  Receive Date: 20100715
  Receipt Date: 20070815
  Transmission Date: 20110219
  Serious: No
  Sender: FDA-Public Use
  Company Number: US-PFIZER INC-2007068896

PATIENT
  Sex: Female
  Weight: 58.6 kg

DRUGS (7)
  1. CHANTIX [Suspect]
     Indication: SMOKING CESSATION THERAPY
     Dates: start: 20070805
  2. MUCINEX [Concomitant]
  3. NORTRIPTYLINE [Concomitant]
  4. DOCUSATE SODIUM [Concomitant]
     Indication: CONSTIPATION
  5. MEDROXYPROGESTERONE [Concomitant]
  6. ESTRADIOL [Concomitant]
  7. PSYLLIUM [Concomitant]
     Dosage: 2 EVERY 1 WEEKS
     Route: 048

REACTIONS (4)
  - ABNORMAL DREAMS [None]
  - CONSTIPATION [None]
  - DECREASED APPETITE [None]
  - NAUSEA [None]
